FAERS Safety Report 22532827 (Version 1)
Quarter: 2023Q2

REPORT INFORMATION
  Report Type: Spontaneous
  Country: FR (occurrence: FR)
  Receive Date: 20230607
  Receipt Date: 20230607
  Transmission Date: 20230721
  Serious: Yes (Hospitalization)
  Sender: FDA-Public Use
  Company Number: FR-NOVPHSZ-PHHY2019FR028272

PATIENT
  Age: 48 Year
  Sex: Female

DRUGS (1)
  1. ACETAMINOPHEN [Suspect]
     Active Substance: ACETAMINOPHEN
     Indication: Toxicity to various agents
     Dosage: 1 OT (1 TOTAL)
     Route: 048
     Dates: start: 20180804, end: 20180804

REACTIONS (4)
  - Analgesic drug level increased [Recovered/Resolved]
  - Poisoning deliberate [Recovered/Resolved]
  - Exposure to household chemicals [Recovered/Resolved]
  - Intentional overdose [Recovered/Resolved]

NARRATIVE: CASE EVENT DATE: 20180804
